FAERS Safety Report 6870575-1 (Version None)
Quarter: 2010Q3

REPORT INFORMATION
  Report Type: 
  Country: None (occurrence: None)
  Receive Date: 20100723
  Receipt Date: 20100712
  Transmission Date: 20110219
  Serious: Yes (Hospitalization)
  Sender: FDA-Public Use
  Company Number: JP-CELGENEUS-087-C5013-10061821

PATIENT
  Sex: Male
  Weight: 66.8 kg

DRUGS (3)
  1. CC-5013 [Suspect]
     Indication: MULTIPLE MYELOMA
     Route: 048
     Dates: start: 20091116, end: 20100530
  2. DEXAMETHASONE [Suspect]
     Indication: MULTIPLE MYELOMA
     Route: 065
     Dates: start: 20091116, end: 20100525
  3. ANTIBIOTIC [Concomitant]
     Indication: CHOLECYSTITIS
     Route: 051
     Dates: start: 20100606, end: 20100615

REACTIONS (1)
  - GASTRIC CANCER [None]
